FAERS Safety Report 5252236-8 (Version None)
Quarter: 2007Q1

REPORT INFORMATION
  Report Type: 
  Country: None (occurrence: None)
  Receive Date: 20070227
  Receipt Date: 20070227
  Transmission Date: 20070707
  Serious: Yes (Hospitalization, Disabling, Other)
  Sender: FDA-Public Use
  Company Number: None

PATIENT
  Sex: Female

DRUGS (2)
  1. RISPERDAL CONSTA [Suspect]
     Indication: PARANOIA
     Dosage: 25MG   Q 2 WEEKS   UNK
     Dates: start: 20070215, end: 20070215
  2. RISPERDAL CONSTA [Suspect]
     Indication: SCHIZOPHRENIA
     Dosage: 25MG   Q 2 WEEKS   UNK
     Dates: start: 20070215, end: 20070215

REACTIONS (2)
  - ACCIDENTAL EXPOSURE [None]
  - DEVICE BREAKAGE [None]
